FAERS Safety Report 8215285-3 (Version None)
Quarter: 2012Q1

REPORT INFORMATION
  Report Type: 
  Country: None (occurrence: None)
  Receive Date: 20120314
  Receipt Date: 20120215
  Transmission Date: 20120608
  Serious: No
  Sender: FDA-Public Use
  Company Number: CC-12-004

PATIENT
  Age: 60 Year
  Sex: Female
  Weight: 57.1532 kg

DRUGS (5)
  1. FLUOXETINE [Suspect]
     Indication: DEPRESSION
     Dosage: 20 MG/5 ML - ONCE DAILY
  2. PLAVIX [Concomitant]
  3. SIMVASTATIN [Concomitant]
  4. ASPIRIN [Concomitant]
  5. NIACIN [Concomitant]

REACTIONS (5)
  - PRODUCT QUALITY ISSUE [None]
  - NAUSEA [None]
  - HEADACHE [None]
  - ANXIETY [None]
  - PRODUCT TASTE ABNORMAL [None]
